FAERS Safety Report 19590133 (Version 3)
Quarter: 2021Q4

REPORT INFORMATION
  Report Type: Spontaneous
  Country: US (occurrence: US)
  Receive Date: 20210721
  Receipt Date: 20211226
  Transmission Date: 20220303
  Serious: No
  Sender: FDA-Public Use
  Company Number: US-SA-SAC20210716000163

PATIENT
  Sex: Female

DRUGS (2)
  1. AUBAGIO [Suspect]
     Active Substance: TERIFLUNOMIDE
     Indication: Multiple sclerosis
     Dosage: 14 MG, QD
     Route: 048
     Dates: start: 20190725
  2. AUBAGIO [Suspect]
     Active Substance: TERIFLUNOMIDE
     Dosage: 14 MG, QD
     Route: 048
     Dates: start: 202104

REACTIONS (8)
  - Feeling abnormal [Unknown]
  - Memory impairment [Unknown]
  - Fatigue [Unknown]
  - Somnolence [Unknown]
  - Neuralgia [Unknown]
  - Condition aggravated [Unknown]
  - Myalgia [Unknown]
  - Condition aggravated [Unknown]
